FAERS Safety Report 4356253-1 (Version None)
Quarter: 2004Q2

REPORT INFORMATION
  Report Type: 
  Country: None (occurrence: None)
  Receive Date: 20040511
  Receipt Date: 20040427
  Transmission Date: 20050107
  Serious: Yes (Other)
  Sender: FDA-Public Use
  Company Number: DE-SHR-04-024739

PATIENT
  Age: 82 Year
  Sex: Female

DRUGS (4)
  1. ULTRAVIST (IOPROMIDE) [Suspect]
     Indication: ARTERIOGRAM CORONARY
     Dosage: 130 ML, INTRA-ARTERIAL
     Route: 013
  2. ANTIHYPERTENSIVES [Concomitant]
  3. CLOPIDOGREL (CLOPIDOGREL) [Concomitant]
  4. ACETYLSALICYLIC ACID SRT [Concomitant]

REACTIONS (5)
  - APHASIA [None]
  - BRAIN OEDEMA [None]
  - DEPRESSED LEVEL OF CONSCIOUSNESS [None]
  - EXTRAVASATION [None]
  - HEMIPARESIS [None]
